APPROVED DRUG PRODUCT: TIMOLOL MALEATE
Active Ingredient: TIMOLOL MALEATE
Strength: EQ 0.25% BASE
Dosage Form/Route: SOLUTION/DROPS;OPHTHALMIC
Application: A075411 | Product #001
Applicant: APOTEX INC
Approved: Sep 8, 2000 | RLD: No | RS: No | Type: DISCN